FAERS Safety Report 7364887-5 (Version None)
Quarter: 2011Q1

REPORT INFORMATION
  Report Type: 
  Country: None (occurrence: None)
  Receive Date: 20110321
  Receipt Date: 20110311
  Transmission Date: 20110831
  Serious: Yes (Hospitalization, Disabling)
  Sender: FDA-Public Use
  Company Number: BR-ASTRAZENECA-2011SE14515

PATIENT
  Age: 73 Year
  Sex: Female
  Weight: 65 kg

DRUGS (3)
  1. TRANQUINAL [Suspect]
     Indication: INSOMNIA
     Route: 048
     Dates: start: 20110201
  2. ATACAND [Suspect]
     Indication: HYPERTENSION
     Route: 048
     Dates: start: 20090101, end: 20110201
  3. ATACAND [Suspect]
     Route: 048
     Dates: start: 20110201, end: 20110301

REACTIONS (10)
  - SOMNOLENCE [None]
  - BLOOD PRESSURE INADEQUATELY CONTROLLED [None]
  - INSOMNIA [None]
  - FALL [None]
  - FRACTURED COCCYX [None]
  - DIZZINESS [None]
  - HAND FRACTURE [None]
  - LABYRINTHITIS [None]
  - DIABETES MELLITUS [None]
  - CAROTID ARTERY OCCLUSION [None]
